FAERS Safety Report 8349001-1 (Version None)
Quarter: 2012Q2

REPORT INFORMATION
  Report Type: 
  Country: None (occurrence: None)
  Receive Date: 20120508
  Receipt Date: 20120426
  Transmission Date: 20120825
  Serious: Yes (Other)
  Sender: FDA-Public Use
  Company Number: CA-008290

PATIENT
  Age: 75 Year
  Sex: Male

DRUGS (16)
  1. HYDROMORPHONE HCL [Concomitant]
  2. CASODEX [Concomitant]
  3. TAMSULOSIN HCL [Concomitant]
  4. ABIRATERONE [Concomitant]
  5. TAXOTERE [Concomitant]
  6. FIRMAGON [Suspect]
     Dates: start: 20110101, end: 20110101
  7. DEXAMETHASONE [Concomitant]
  8. CRESTOR [Concomitant]
  9. LACTULOSE [Concomitant]
  10. ASPIRIN [Concomitant]
  11. ZOMETA [Concomitant]
  12. DILTIAZEM [Concomitant]
  13. PREDNISONE TAB [Concomitant]
  14. ZANTAC [Concomitant]
  15. LORAZEPAM [Concomitant]
  16. ACETATE [Concomitant]

REACTIONS (1)
  - RHABDOMYOLYSIS [None]
